FAERS Safety Report 17957722 (Version 1)
Quarter: 2020Q2

REPORT INFORMATION
  Report Type: Spontaneous
  Country: US (occurrence: US)
  Receive Date: 20200629
  Receipt Date: 20200629
  Transmission Date: 20200714
  Serious: No
  Sender: FDA-Public Use
  Company Number: US-PFIZER INC-2020248107

PATIENT
  Age: 62 Year
  Sex: Male
  Weight: 106.59 kg

DRUGS (2)
  1. CAVERJECT IMPULSE [Suspect]
     Active Substance: ALPROSTADIL
     Indication: CARDIAC DISORDER
     Dosage: UNK UNK, AS NEEDED (5 (UNKNOWN UNIT OF DOSAGE) BY INJECTION AS NEEDED)
     Dates: start: 201910
  2. CAVERJECT IMPULSE [Suspect]
     Active Substance: ALPROSTADIL
     Dosage: UNK (INCREASED HIS DOSAGE TO 10 THEN 20)

REACTIONS (1)
  - Drug ineffective [Recovering/Resolving]

NARRATIVE: CASE EVENT DATE: 2019
